FAERS Safety Report 9637529 (Version 1)
Quarter: 2013Q4

REPORT INFORMATION
  Report Type: Spontaneous
  Country: DE (occurrence: DE)
  Receive Date: 20131022
  Receipt Date: 20131022
  Transmission Date: 20140711
  Serious: Yes (Other)
  Sender: FDA-Public Use
  Company Number: PHHY2013DE118123

PATIENT
  Age: 57 Year
  Sex: Male
  Weight: 80 kg

DRUGS (5)
  1. GILENYA [Suspect]
     Indication: RELAPSING-REMITTING MULTIPLE SCLEROSIS
     Dosage: 0.5 MG, QD
     Route: 048
     Dates: start: 201210
  2. AMLODIPINE [Concomitant]
     Dosage: 10 MG, QD
  3. ASA [Concomitant]
     Dosage: 100 MG, QD
  4. SIMVASTATIN [Concomitant]
     Dosage: 20 MG, QD
  5. DORZOLAMIDE/TIMOLOL                /01419801/ [Concomitant]
     Dosage: DORZOLAMIDE HYDROCHLORIDE: 20 MG, TIMOLOL MALEATE: 5MG
     Route: 047

REACTIONS (1)
  - Basal cell carcinoma [Not Recovered/Not Resolved]
